FAERS Safety Report 6182866-0 (Version None)
Quarter: 2009Q2

REPORT INFORMATION
  Report Type: 
  Country: None (occurrence: None)
  Receive Date: 20090507
  Receipt Date: 20090430
  Transmission Date: 20091009
  Serious: Yes (Hospitalization)
  Sender: FDA-Public Use
  Company Number: DE-BRISTOL-MYERS SQUIBB COMPANY-14253330

PATIENT
  Age: 68 Year
  Sex: Male
  Weight: 97 kg

DRUGS (4)
  1. CETUXIMAB [Suspect]
     Indication: COLORECTAL CANCER METASTATIC
     Dosage: RECENT INFUSION DATE: 01-JUL-2008.
     Route: 042
     Dates: start: 20080506
  2. FLUOROURACIL [Suspect]
     Indication: COLORECTAL CANCER METASTATIC
     Dosage: MOST RECENT INFUSION ON 01-JUL-2008. 1200 MG
     Route: 042
     Dates: start: 20080506
  3. OXALIPLATIN [Suspect]
     Indication: COLORECTAL CANCER METASTATIC
     Dosage: RECENT INFUSION DATE: 01-JUL-2008.
     Route: 042
     Dates: start: 20080506
  4. FOLINIC ACID [Concomitant]
     Indication: COLORECTAL CANCER METASTATIC
     Dosage: START DATE 06-MAY-2008
     Route: 042
     Dates: start: 20080701, end: 20080701

REACTIONS (1)
  - PLEURAL EFFUSION [None]
